FAERS Safety Report 15105856 (Version 1)
Quarter: 2018Q3

REPORT INFORMATION
  Report Type: Spontaneous
  Country: IT (occurrence: IT)
  Receive Date: 20180704
  Receipt Date: 20180704
  Transmission Date: 20181010
  Serious: Yes (Hospitalization, Other)
  Sender: FDA-Public Use
  Company Number: IT-ACCORD-069015

PATIENT
  Age: 64 Year
  Sex: Female

DRUGS (1)
  1. ALLOPURINOL. [Suspect]
     Active Substance: ALLOPURINOL
     Indication: PRODUCT USED FOR UNKNOWN INDICATION

REACTIONS (8)
  - Myocardial necrosis marker increased [Unknown]
  - Renal failure [Unknown]
  - Thrombocytopenia [Unknown]
  - Respiratory alkalosis [Unknown]
  - Anaemia [Unknown]
  - Nephrolithiasis [Unknown]
  - Drug reaction with eosinophilia and systemic symptoms [Unknown]
  - Hepatic steatosis [Unknown]
